FAERS Safety Report 12385793 (Version 1)
Quarter: 2016Q2

REPORT INFORMATION
  Report Type: Spontaneous
  Country: US (occurrence: US)
  Receive Date: 20160519
  Receipt Date: 20160519
  Transmission Date: 20160815
  Serious: No
  Sender: FDA-Public Use
  Company Number: US-MALLINCKRODT-T201503669

PATIENT
  Age: 36 Year
  Sex: Male
  Weight: 73 kg

DRUGS (3)
  1. ACETAMINOPHEN\HYDROCODONE BITARTRATE [Suspect]
     Active Substance: ACETAMINOPHEN\HYDROCODONE BITARTRATE
     Indication: SPINAL PAIN
     Dosage: 1 TAB Q4H, PRN
     Route: 048
     Dates: start: 20150717, end: 20150719
  2. SYNTHROID [Concomitant]
     Active Substance: LEVOTHYROXINE SODIUM
  3. ACETAMINOPHEN\HYDROCODONE BITARTRATE [Suspect]
     Active Substance: ACETAMINOPHEN\HYDROCODONE BITARTRATE
     Dosage: ^TOOK 4 TABLETS AT ONCE^
     Route: 048
     Dates: start: 20150719, end: 20150719

REACTIONS (3)
  - Intentional product misuse [Recovered/Resolved]
  - Fatigue [Unknown]
  - Drug ineffective [Recovered/Resolved]

NARRATIVE: CASE EVENT DATE: 20150717
